FAERS Safety Report 25529705 (Version 1)
Quarter: 2025Q3

REPORT INFORMATION
  Report Type: Spontaneous
  Country: EU (occurrence: EU)
  Receive Date: 20250708
  Receipt Date: 20250708
  Transmission Date: 20251021
  Serious: Yes (Other)
  Sender: PFIZER
  Company Number: None

PATIENT
  Age: 40 Year
  Sex: Female
  Weight: 107 kg

DRUGS (1)
  1. CYTOTEC [Suspect]
     Active Substance: MISOPROSTOL
     Indication: Labour induction
     Route: 048
     Dates: start: 20191227, end: 20191227

REACTIONS (14)
  - Maternal exposure during pregnancy [Unknown]
  - Vulvovaginal injury [Recovered/Resolved]
  - Intrapartum haemorrhage [Unknown]
  - Perineal injury [Recovered/Resolved]
  - Circulatory collapse [Unknown]
  - Internal haemorrhage [Unknown]
  - Haemoglobin decreased [Unknown]
  - Uterine tachysystole [Recovered/Resolved]
  - Emotional distress [Unknown]
  - Vacuum extractor delivery [Recovered/Resolved]
  - Pain [Recovered/Resolved]
  - Postoperative wound complication [Recovered/Resolved]
  - Impaired healing [Recovered/Resolved]
  - Off label use [Unknown]

NARRATIVE: CASE EVENT DATE: 20191227
